FAERS Safety Report 23482539 (Version 3)
Quarter: 2024Q2

REPORT INFORMATION
  Report Type: Spontaneous
  Country: US (occurrence: US)
  Receive Date: 20240205
  Receipt Date: 20240416
  Transmission Date: 20240716
  Serious: Yes (Other)
  Sender: FDA-Public Use
  Company Number: US-ELI_LILLY_AND_COMPANY-US202401014171

PATIENT
  Age: 44 Year
  Sex: Female
  Weight: 73.923 kg

DRUGS (1)
  1. TALTZ [Suspect]
     Active Substance: IXEKIZUMAB
     Indication: Psoriasis
     Dosage: 80 MG, OTHER(Q FOUR WEEK)
     Route: 058

REACTIONS (2)
  - Fall [Recovered/Resolved]
  - Foot fracture [Recovering/Resolving]

NARRATIVE: CASE EVENT DATE: 20230801
